FAERS Safety Report 19287975 (Version 1)
Quarter: 2021Q2

REPORT INFORMATION
  Report Type: Spontaneous
  Country: DE (occurrence: DE)
  Receive Date: 20210521
  Receipt Date: 20210521
  Transmission Date: 20210717
  Serious: Yes (Other)
  Sender: FDA-Public Use
  Company Number: DE-PURDUE-USA-2021-0262428

PATIENT
  Age: 29 Year
  Sex: Male

DRUGS (7)
  1. QUETIAPINE. [Suspect]
     Active Substance: QUETIAPINE
     Indication: PRODUCT USED FOR UNKNOWN INDICATION
     Dosage: UNK
     Route: 065
  2. FLUMAZENIL. [Suspect]
     Active Substance: FLUMAZENIL
     Indication: PRODUCT USED FOR UNKNOWN INDICATION
     Dosage: UNK
     Route: 065
  3. NON?PMN METHYLPHENIDATE HYDROCHLORIDE [Suspect]
     Active Substance: METHYLPHENIDATE HYDROCHLORIDE
     Indication: PRODUCT USED FOR UNKNOWN INDICATION
     Dosage: UNK
     Route: 065
  4. LORAZEPAM. [Suspect]
     Active Substance: LORAZEPAM
     Indication: PRODUCT USED FOR UNKNOWN INDICATION
     Dosage: UNK
     Route: 065
  5. NORTRIPTYLINE [Suspect]
     Active Substance: NORTRIPTYLINE
     Indication: PRODUCT USED FOR UNKNOWN INDICATION
     Dosage: UNK
     Route: 065
  6. LITHIUM. [Suspect]
     Active Substance: LITHIUM
     Indication: PRODUCT USED FOR UNKNOWN INDICATION
     Dosage: UNK
     Route: 065
  7. PREGABALIN. [Suspect]
     Active Substance: PREGABALIN
     Indication: PRODUCT USED FOR UNKNOWN INDICATION
     Dosage: UNK
     Route: 065

REACTIONS (15)
  - Ventricular extrasystoles [Recovering/Resolving]
  - Gingival recession [Not Recovered/Not Resolved]
  - Selective IgA immunodeficiency [Unknown]
  - Tooth injury [Not Recovered/Not Resolved]
  - Dental caries [Not Recovered/Not Resolved]
  - Off label use [Recovered/Resolved]
  - Hallucination, auditory [Recovered/Resolved]
  - Polydipsia [Unknown]
  - Paranoia [Recovered/Resolved]
  - Tooth loss [Not Recovered/Not Resolved]
  - Blood brain barrier defect [Unknown]
  - Dental prosthesis user [Not Recovered/Not Resolved]
  - Antinuclear antibody positive [Unknown]
  - Generalised tonic-clonic seizure [Recovered/Resolved]
  - Tooth discolouration [Not Recovered/Not Resolved]
